FAERS Safety Report 8283377-9 (Version None)
Quarter: 2012Q2

REPORT INFORMATION
  Report Type: 
  Country: None (occurrence: None)
  Receive Date: 20120413
  Receipt Date: 20120402
  Transmission Date: 20120825
  Serious: Yes (Death, Life-Threatening, Hospitalization)
  Sender: FDA-Public Use
  Company Number: HK-MILLENNIUM PHARMACEUTICALS, INC.-2012-01839

PATIENT

DRUGS (3)
  1. DEXAMETHASONE [Concomitant]
  2. THALIDOMIDE [Concomitant]
  3. VELCADE [Suspect]
     Indication: MULTIPLE MYELOMA
     Dosage: 1.3 MG, 1/WEEK
     Route: 042

REACTIONS (1)
  - MYOCARDIAL INFARCTION [None]
